FAERS Safety Report 5281371-3 (Version None)
Quarter: 2007Q1

REPORT INFORMATION
  Report Type: 
  Country: None (occurrence: None)
  Receive Date: 20070330
  Receipt Date: 20070321
  Transmission Date: 20070707
  Serious: Yes (Hospitalization)
  Sender: FDA-Public Use
  Company Number: FR-JNJFOC-20070203211

PATIENT
  Age: 71 Year
  Sex: Female

DRUGS (8)
  1. TRAMADOL HCL [Suspect]
     Indication: TOOTH EXTRACTION
     Route: 048
  2. CLAMOXYL [Suspect]
     Indication: TOOTH EXTRACTION
     Route: 065
  3. XYLOCARD [Concomitant]
     Indication: TOOTH EXTRACTION
     Route: 065
  4. LEXOMIL [Concomitant]
     Indication: ANXIETY
     Route: 048
  5. LAROXYL [Concomitant]
     Indication: DEPRESSION
     Route: 048
  6. OROCAL D(3) [Concomitant]
     Indication: OSTEOPOROSIS
     Route: 048
  7. IDARAC [Concomitant]
     Route: 048
  8. SULFARLEM [Concomitant]
     Route: 048

REACTIONS (6)
  - EOSINOPHILIA [None]
  - LYMPHADENOPATHY [None]
  - PRURITUS [None]
  - PYREXIA [None]
  - RASH MACULO-PAPULAR [None]
  - RASH PUSTULAR [None]
